FAERS Safety Report 8302155-5 (Version None)
Quarter: 2012Q2

REPORT INFORMATION
  Report Type: 
  Country: None (occurrence: None)
  Receive Date: 20120404
  Receipt Date: 20120319
  Transmission Date: 20120825
  Serious: Yes (Hospitalization)
  Sender: FDA-Public Use
  Company Number: 2012031615

PATIENT
  Age: 56 Year
  Sex: Female
  Weight: 51 kg

DRUGS (5)
  1. PRIVIGEN [Suspect]
     Indication: IMMUNE TOLERANCE INDUCTION
     Dosage: 110 G TOTAL, OVER 4 HOURS DURING DIALUSIS. INTRAVENOUS (NOT OTHERWISE SPECIFIED)
     Dates: start: 20120215
  2. PRIVIGEN [Suspect]
  3. DILTIAZEM [Concomitant]
  4. SYNTHROID [Concomitant]
  5. BENZAPRIL (LIBENZAPRIL) [Concomitant]

REACTIONS (5)
  - CHEST PAIN [None]
  - TROPONIN INCREASED [None]
  - DIZZINESS [None]
  - DYSPNOEA [None]
  - BLOOD PRESSURE SYSTOLIC INCREASED [None]
